FAERS Safety Report 9263197 (Version 1)
Quarter: 2013Q1

REPORT INFORMATION
  Report Type: Spontaneous
  Country: US (occurrence: None)
  Receive Date: 20121212
  Receipt Date: 20121212
  Transmission Date: 20140127
  Serious: No
  Sender: FDA-Public Use
  Company Number: 12010USA013698

PATIENT
  Age: 48 Year
  Sex: Female

DRUGS (3)
  1. VICTRELIS [Suspect]
     Route: 048
     Dates: start: 2012
  2. TYNELOL (ACETAMINOPHEN) TABLET [Concomitant]
  3. CALCIUM (UNSPECIFIED) (CALCIUM (UNSPECIFIED)) TABLET [Concomitant]

REACTIONS (6)
  - Headache [None]
  - Oedema peripheral [None]
  - Pain in extremity [None]
  - Nausea [None]
  - Anaemia [None]
  - Dysgeusia [None]
